FAERS Safety Report 4772019-2 (Version None)
Quarter: 2005Q3

REPORT INFORMATION
  Report Type: 
  Country: None (occurrence: None)
  Receive Date: 20050916
  Receipt Date: 20050830
  Transmission Date: 20060218
  Serious: Yes (Hospitalization)
  Sender: FDA-Public Use
  Company Number: IE-ABBOTT-05P-167-0310147-00

PATIENT
  Age: 35 Year
  Sex: Male

DRUGS (1)
  1. BIAXIN [Suspect]
     Indication: SINUSITIS

REACTIONS (4)
  - CONFUSIONAL STATE [None]
  - LIVER FUNCTION TEST ABNORMAL [None]
  - MANIA [None]
  - PANCREATIC ENZYMES INCREASED [None]
